FAERS Safety Report 18253042 (Version 2)
Quarter: 2020Q3

REPORT INFORMATION
  Report Type: Spontaneous
  Country: GB (occurrence: GB)
  Receive Date: 20200910
  Receipt Date: 20200916
  Transmission Date: 20201103
  Serious: Yes (Hospitalization, Other)
  Sender: FDA-Public Use
  Company Number: GB-MYLANLABS-2020M1077929

PATIENT
  Age: 37 Year
  Sex: Female

DRUGS (3)
  1. ZOLADEX [Suspect]
     Active Substance: GOSERELIN ACETATE
     Indication: METASTASES TO LIVER
     Dosage: UNK
     Dates: start: 201710
  2. PALBOCICLIB [Suspect]
     Active Substance: PALBOCICLIB
     Indication: METASTASES TO LIVER
     Dosage: UNK
     Dates: start: 201710
  3. LETROZOLE. [Suspect]
     Active Substance: LETROZOLE
     Indication: METASTASES TO LIVER
     Dosage: UNK
     Dates: start: 201710

REACTIONS (5)
  - C-reactive protein increased [Unknown]
  - Febrile neutropenia [Recovered/Resolved]
  - Oropharyngeal pain [Recovered/Resolved]
  - SARS-CoV-2 test positive [Recovered/Resolved]
  - Cough [Recovered/Resolved]

NARRATIVE: CASE EVENT DATE: 201712
